FAERS Safety Report 23178509 (Version 1)
Quarter: 2023Q4

REPORT INFORMATION
  Report Type: Report from Study
  Country: US (occurrence: US)
  Receive Date: 20231113
  Receipt Date: 20231113
  Transmission Date: 20240109
  Serious: Yes (Other)
  Sender: FDA-Public Use
  Company Number: US-OTSUKA-2023_028464

PATIENT
  Sex: Male

DRUGS (1)
  1. TOLVAPTAN [Suspect]
     Active Substance: TOLVAPTAN
     Indication: Congenital cystic kidney disease
     Dosage: UNK
     Route: 065
     Dates: start: 20231014

REACTIONS (8)
  - Renal impairment [Unknown]
  - Malaise [Unknown]
  - Blood pressure decreased [Unknown]
  - Asthenia [Unknown]
  - Polydipsia [Unknown]
  - Nocturia [Unknown]
  - Fatigue [Unknown]
  - Polyuria [Unknown]

NARRATIVE: CASE EVENT DATE: 20231014
